FAERS Safety Report 15059700 (Version 1)
Quarter: 2018Q2

REPORT INFORMATION
  Report Type: Spontaneous
  Country: US (occurrence: US)
  Receive Date: 20180625
  Receipt Date: 20180625
  Transmission Date: 20180711
  Serious: No
  Sender: FDA-Public Use
  Company Number: US-SA-2018SA165004

PATIENT
  Sex: Female

DRUGS (4)
  1. PLAVIX [Concomitant]
     Active Substance: CLOPIDOGREL BISULFATE
  2. ELIQUIS [Suspect]
     Active Substance: APIXABAN
  3. CORGARD [Concomitant]
     Active Substance: NADOLOL
  4. PRALUENT [Suspect]
     Active Substance: ALIROCUMAB
     Indication: BLOOD CHOLESTEROL
     Dosage: 75 MG, QOW

REACTIONS (3)
  - Product quality issue [Unknown]
  - Blood cholesterol decreased [Unknown]
  - Diarrhoea [Unknown]
